FAERS Safety Report 6064029-2 (Version None)
Quarter: 2009Q1

REPORT INFORMATION
  Report Type: 
  Country: None (occurrence: None)
  Receive Date: 20090204
  Receipt Date: 20090123
  Transmission Date: 20090719
  Serious: Yes (Hospitalization, Other)
  Sender: FDA-Public Use
  Company Number: GB-JNJFOC-20080702360

PATIENT
  Sex: Female
  Weight: 59 kg

DRUGS (16)
  1. REMICADE [Suspect]
     Route: 042
  2. REMICADE [Suspect]
     Indication: RHEUMATOID ARTHRITIS
     Route: 042
  3. BECLOMETHASONE DIPROPIONATE [Concomitant]
  4. CO-PRAXAMOL [Concomitant]
  5. FEMOSTON [Concomitant]
  6. MELOXICAM [Concomitant]
  7. PATOPRAZOLE [Concomitant]
  8. SALBUTAMOL [Concomitant]
  9. ALBUTEROL [Concomitant]
  10. THYROXINE [Concomitant]
  11. VALSARTAN [Concomitant]
  12. METHOTREXATE [Concomitant]
  13. FOLIC ACID [Concomitant]
  14. DULOXETINE [Concomitant]
  15. RANITIDINE [Concomitant]
  16. ACETAMINOPHEN W/ CODEINE [Concomitant]

REACTIONS (1)
  - BREAST CANCER [None]
